FAERS Safety Report 10228937 (Version 3)
Quarter: 2014Q3

REPORT INFORMATION
  Report Type: Spontaneous
  Country: US (occurrence: US)
  Receive Date: 20140610
  Receipt Date: 20140814
  Transmission Date: 20150326
  Serious: Yes (Hospitalization)
  Sender: FDA-Public Use
  Company Number: US-GLAXOSMITHKLINE-A1075701A

PATIENT
  Age: 59 Year
  Sex: Male
  Weight: 67.3 kg

DRUGS (6)
  1. AMLODIPINE [Concomitant]
     Active Substance: AMLODIPINE BESYLATE
  2. REMERON [Concomitant]
     Active Substance: MIRTAZAPINE
  3. ADVAIR HFA [Suspect]
     Active Substance: FLUTICASONE PROPIONATE\SALMETEROL XINAFOATE
     Indication: CHRONIC OBSTRUCTIVE PULMONARY DISEASE
     Dosage: 1PUFF TWICE PER DAY
     Route: 055
  4. KLONOPIN [Concomitant]
     Active Substance: CLONAZEPAM
  5. LORTAB [Concomitant]
     Active Substance: ACETAMINOPHEN\HYDROCODONE BITARTRATE
     Indication: BACK DISORDER
  6. CLONIDINE. [Concomitant]
     Active Substance: CLONIDINE

REACTIONS (11)
  - Lung disorder [Unknown]
  - Asthma [Unknown]
  - General physical health deterioration [Unknown]
  - Dementia [Unknown]
  - Dyspnoea [Unknown]
  - Back injury [Unknown]
  - Pain [Unknown]
  - Exercise tolerance decreased [Unknown]
  - Adverse event [Unknown]
  - Walking aid user [Unknown]
  - Memory impairment [Unknown]

NARRATIVE: CASE EVENT DATE: 2011
